FAERS Safety Report 11031029 (Version 2)
Quarter: 2015Q3

REPORT INFORMATION
  Report Type: Spontaneous
  Country: US (occurrence: US)
  Receive Date: 20150415
  Receipt Date: 20150918
  Transmission Date: 20151125
  Serious: Yes (Hospitalization)
  Sender: FDA-Public Use
  Company Number: US-BAYER-2015-135635

PATIENT
  Age: 27 Year
  Sex: Female
  Weight: 120.18 kg

DRUGS (1)
  1. MIRENA [Suspect]
     Active Substance: LEVONORGESTREL
     Indication: CONTRACEPTION
     Dosage: 20 MCG/24HR, CONT
     Route: 015
     Dates: start: 20080208, end: 20130423

REACTIONS (7)
  - Emotional distress [None]
  - Injury [None]
  - Vulvovaginal pain [None]
  - Procedural pain [None]
  - Medical device discomfort [None]
  - Device use error [None]
  - Embedded device [None]

NARRATIVE: CASE EVENT DATE: 201304
